FAERS Safety Report 14585455 (Version 2)
Quarter: 2018Q2

REPORT INFORMATION
  Report Type: Spontaneous
  Country: GB (occurrence: GB)
  Receive Date: 20180301
  Receipt Date: 20180613
  Transmission Date: 20180711
  Serious: Yes (Other)
  Sender: FDA-Public Use
  Company Number: GB-AMGEN-GBRSP2017171636

PATIENT
  Age: 74 Year
  Sex: Female
  Weight: 78 kg

DRUGS (2)
  1. PROLIA [Suspect]
     Active Substance: DENOSUMAB
     Indication: OSTEOPOROSIS
     Dosage: 60 MG, Q6MO
     Route: 058
     Dates: start: 20170803
  2. FULTIUM D3 [Concomitant]
     Active Substance: CHOLECALCIFEROL
     Indication: OSTEOPOROSIS
     Dosage: 800 IU, UNK

REACTIONS (18)
  - Sleep disorder due to general medical condition, insomnia type [Unknown]
  - Tearfulness [Unknown]
  - Pain in extremity [Not Recovered/Not Resolved]
  - Urinary tract infection [Not Recovered/Not Resolved]
  - Memory impairment [Unknown]
  - Pain [Unknown]
  - Arthralgia [Not Recovered/Not Resolved]
  - Limb mass [Unknown]
  - Eye pain [Unknown]
  - Gait disturbance [Unknown]
  - Constipation [Unknown]
  - Neuropathy peripheral [Not Recovered/Not Resolved]
  - Loss of personal independence in daily activities [Unknown]
  - Alopecia [Not Recovered/Not Resolved]
  - Ear pain [Unknown]
  - Discomfort [Unknown]
  - Depression [Unknown]
  - Vertigo [Not Recovered/Not Resolved]

NARRATIVE: CASE EVENT DATE: 2017
